FAERS Safety Report 7371615-6 (Version None)
Quarter: 2011Q1

REPORT INFORMATION
  Report Type: 
  Country: None (occurrence: None)
  Receive Date: 20110324
  Receipt Date: 20110309
  Transmission Date: 20110831
  Serious: Yes (Hospitalization)
  Sender: FDA-Public Use
  Company Number: JP-PFIZER INC-JP-WYE-H13326910

PATIENT
  Age: 48 Year
  Sex: Male

DRUGS (10)
  1. CALONAL [Concomitant]
  2. SIGMART [Concomitant]
  3. ARTIST [Concomitant]
  4. ANCARON [Suspect]
     Indication: VENTRICULAR TACHYCARDIA
     Dosage: 100.0 MG, 1X/DAY
     Route: 048
     Dates: start: 20070101, end: 20091019
  5. NITOROL [Concomitant]
  6. MAGNESIUM OXIDE [Concomitant]
  7. MYSLEE [Concomitant]
  8. DEQUALINIUM [Concomitant]
  9. LOXONIN [Concomitant]
  10. PURSENNID [Concomitant]

REACTIONS (16)
  - PALPITATIONS [None]
  - DRUG EFFECT DECREASED [None]
  - HYPERHIDROSIS [None]
  - ANGINA UNSTABLE [None]
  - INFECTION [None]
  - DIVERTICULAR PERFORATION [None]
  - CHOLECYSTITIS ACUTE [None]
  - THYROIDITIS [None]
  - HOT FLUSH [None]
  - THYROTOXIC CRISIS [None]
  - DIARRHOEA [None]
  - NAUSEA [None]
  - WEIGHT DECREASED [None]
  - PYREXIA [None]
  - GOITRE [None]
  - ADRENAL INSUFFICIENCY [None]
